FAERS Safety Report 9413215 (Version 8)
Quarter: 2014Q1

REPORT INFORMATION
  Report Type: Spontaneous
  Country: GB (occurrence: GB)
  Receive Date: 20130722
  Receipt Date: 20140122
  Transmission Date: 20141002
  Serious: Yes (Hospitalization, Other)
  Sender: FDA-Public Use
  Company Number: GB-ROCHE-1251433

PATIENT
  Age: 12 Year
  Sex: Male
  Weight: 33.82 kg

DRUGS (5)
  1. XOLAIR [Suspect]
     Indication: ASTHMA
     Dosage: THE PATIENT RECEIVED 15 INJECTIONS.
     Route: 058
     Dates: start: 20120517
  2. XOLAIR [Suspect]
     Route: 058
  3. XOLAIR [Suspect]
     Route: 058
     Dates: start: 20131128, end: 20131128
  4. MONTELUKAST [Concomitant]
     Route: 065
     Dates: start: 2011
  5. SERETIDE [Concomitant]
     Route: 065
     Dates: start: 2011

REACTIONS (4)
  - Hypersensitivity [Recovered/Resolved]
  - Contusion [Recovering/Resolving]
  - Platelet count decreased [Not Recovered/Not Resolved]
  - Asthma [Unknown]
